FAERS Safety Report 7411567-3 (Version None)
Quarter: 2011Q2

REPORT INFORMATION
  Report Type: 
  Country: None (occurrence: None)
  Receive Date: 20110413
  Receipt Date: 20110126
  Transmission Date: 20111010
  Serious: No
  Sender: FDA-Public Use
  Company Number: US-BRISTOL-MYERS SQUIBB COMPANY-15268485

PATIENT
  Age: 64 Year
  Sex: Female

DRUGS (1)
  1. ERBITUX [Suspect]
     Indication: COLON CANCER
     Dosage: INCRAESED TO 400MG NO OF INF:2
     Dates: start: 20100824

REACTIONS (3)
  - HYPERSENSITIVITY [None]
  - DERMATITIS ACNEIFORM [None]
  - HEADACHE [None]
